FAERS Safety Report 11089192 (Version 1)
Quarter: 2015Q2

REPORT INFORMATION
  Report Type: Spontaneous
  Country: IT (occurrence: IT)
  Receive Date: 20150505
  Receipt Date: 20150505
  Transmission Date: 20150821
  Serious: Yes (Other)
  Sender: FDA-Public Use
  Company Number: IT-ROCHE-1572708

PATIENT
  Age: 94 Year
  Sex: Female

DRUGS (5)
  1. COUMADIN [Suspect]
     Active Substance: WARFARIN SODIUM
     Indication: CEREBROVASCULAR ACCIDENT PROPHYLAXIS
     Dosage: ^5 MG TABLETS^ 30 SCORED TABLETS
     Route: 048
     Dates: start: 20130709, end: 20150417
  2. ROCEFIN [Suspect]
     Active Substance: CEFTRIAXONE SODIUM
     Indication: BRONCHITIS
     Dosage: 1 G/3.5 ML POWDER AND SOLVENT FOR SOLUTION FOR INJECTION
     Route: 030
     Dates: start: 20150318, end: 20150401
  3. DEPONIT [Concomitant]
     Active Substance: NITROGLYCERIN
     Dosage: ^10 MG/24 H TRANSDERMAL PATCHES^ 15 PATCHES
     Route: 062
  4. AUGMENTIN [Suspect]
     Active Substance: AMOXICILLIN\CLAVULANATE POTASSIUM
     Indication: ERYSIPELAS
     Dosage: ^875 MG/125 MG FILM-COATED TABLETS^ 12 TABLETS
     Route: 048
     Dates: start: 20150407, end: 20150412
  5. LASIX [Concomitant]
     Active Substance: FUROSEMIDE
     Dosage: ^25 MG TABLETS^ 30 TABLETS
     Route: 048

REACTIONS (1)
  - International normalised ratio increased [Recovered/Resolved]

NARRATIVE: CASE EVENT DATE: 20150417
